FAERS Safety Report 16799098 (Version 1)
Quarter: 2019Q3

REPORT INFORMATION
  Report Type: Spontaneous
  Country: US (occurrence: US)
  Receive Date: 20190912
  Receipt Date: 20190912
  Transmission Date: 20191005
  Serious: Yes (Other)
  Sender: FDA-Public Use
  Company Number: US-ALEMBIC PHARMACUETICALS LIMITED-2019SCAL000626

PATIENT

DRUGS (2)
  1. QUETIAPINE FUMARATE. [Suspect]
     Active Substance: QUETIAPINE FUMARATE
     Indication: PRODUCT USED FOR UNKNOWN INDICATION
     Dosage: UNK
  2. VIEKIRA PAK [Suspect]
     Active Substance: DASABUVIR\OMBITASVIR\PARITAPREVIR\RITONAVIR
     Indication: PRODUCT USED FOR UNKNOWN INDICATION
     Dosage: UNK

REACTIONS (22)
  - Electrocardiogram QT prolonged [Unknown]
  - Tremor [Unknown]
  - Disorientation [Unknown]
  - Tachycardia [Unknown]
  - Miosis [Unknown]
  - Drug interaction [Unknown]
  - Anaemia [Unknown]
  - Distributive shock [Unknown]
  - Acute kidney injury [Unknown]
  - Hypokalaemia [Unknown]
  - Hypotension [Unknown]
  - Metabolic acidosis [Unknown]
  - Respiratory acidosis [Unknown]
  - Hyperdynamic left ventricle [Unknown]
  - Seizure [Unknown]
  - Toxicity to various agents [Unknown]
  - Delirium [Unknown]
  - Mucosal dryness [Unknown]
  - Overdose [Unknown]
  - Sinus tachycardia [Unknown]
  - Confusional state [Unknown]
  - Drug level increased [Unknown]
